FAERS Safety Report 16812006 (Version 1)
Quarter: 2019Q3

REPORT INFORMATION
  Report Type: Spontaneous
  Country: US (occurrence: US)
  Receive Date: 20190916
  Receipt Date: 20190916
  Transmission Date: 20191005
  Serious: No
  Sender: FDA-Public Use
  Company Number: US-009507513-1909USA004638

PATIENT
  Sex: Female

DRUGS (3)
  1. ELOCON [Suspect]
     Active Substance: MOMETASONE FUROATE
     Indication: ARTHROPOD BITE
  2. ELOCON [Suspect]
     Active Substance: MOMETASONE FUROATE
     Indication: ECZEMA
     Dosage: 45 GRAM
     Route: 061
  3. ELOCON [Suspect]
     Active Substance: MOMETASONE FUROATE
     Indication: PRURITUS

REACTIONS (4)
  - Incorrect product formulation administered [Unknown]
  - Product dose omission [Unknown]
  - Product availability issue [Recovered/Resolved]
  - Wrong technique in product usage process [Unknown]
